FAERS Safety Report 7306388-6 (Version None)
Quarter: 2011Q1

REPORT INFORMATION
  Report Type: 
  Country: None (occurrence: None)
  Receive Date: 20110210
  Receipt Date: 20110128
  Transmission Date: 20110831
  Serious: Yes (Death, Hospitalization)
  Sender: FDA-Public Use
  Company Number: 1000018686

PATIENT
  Age: 64 Year
  Sex: Female

DRUGS (11)
  1. ESCITALOPRAM OXALATE [Suspect]
     Dosage: 10 MG (10 MG, 1 IN 1 D), ORAL
     Route: 048
     Dates: start: 20101117, end: 20101228
  2. KEPPRA [Concomitant]
  3. LASIX [Concomitant]
  4. SPASFON (PHLOROGLUCINOL, TRIMETHYLPHLOROGLUCINOL) [Concomitant]
  5. SOLU-MEDROL [Suspect]
     Dosage: 120 MG (120 MG, 1 IN 1 D), INTRAVENOUS (NOT OTHERWISE SPECIFIED)
     Route: 042
     Dates: start: 20101117, end: 20101205
  6. TARCEVA (ERLOTINIB) (TABLETS) [Suspect]
     Indication: LUNG NEOPLASM MALIGNANT
     Dosage: 150 MG (150 MG, 1 IN 1 D), ORAL
     Route: 048
     Dates: start: 20101218, end: 20101228
  7. MANNITOL [Concomitant]
  8. IRBESARTAN [Concomitant]
  9. ATARAX [Concomitant]
  10. ZOFRAN [Concomitant]
  11. HYPNOVEL (MIDAZOLAM) [Concomitant]

REACTIONS (2)
  - GASTRODUODENAL ULCER [None]
  - OESOPHAGITIS [None]
